FAERS Safety Report 10044471 (Version 1)
Quarter: 2014Q1

REPORT INFORMATION
  Report Type: Spontaneous
  Country: US (occurrence: None)
  Receive Date: 20140306
  Receipt Date: 20140306
  Transmission Date: 20141002
  Serious: Yes (Other)
  Sender: FDA-Public Use
  Company Number: 163-21880-13070423

PATIENT
  Age: 75 Year
  Sex: Male

DRUGS (6)
  1. REVLIMID ( LENALIDOMIDE) (10 MILLIGRAM, CAPSULES) [Suspect]
     Dates: start: 201304
  2. ASPIRIN [Concomitant]
  3. DEXAMETHASONE (DEXAMETHASONE) [Concomitant]
  4. ACETAMINOPHEN WITH CODEIEN 3 (GALENI-C/OARACETANIK/CODEINE) (TABLETS) [Concomitant]
  5. LISINOPRIL (LISINOPRIL (TABLETS) [Concomitant]
  6. BISOPROLOL-HCTZ (BISELECT) (TABLET) [Concomitant]

REACTIONS (1)
  - Thrombosis [None]
